FAERS Safety Report 17889585 (Version 1)
Quarter: 2020Q2

REPORT INFORMATION
  Report Type: Spontaneous
  Country: US (occurrence: US)
  Receive Date: 20200612
  Receipt Date: 20200612
  Transmission Date: 20200714
  Serious: Yes (Other)
  Sender: FDA-Public Use
  Company Number: None

PATIENT
  Age: 33 Year
  Sex: Female
  Weight: 136.3 kg

DRUGS (15)
  1. ACETAMINOPHEN. [Concomitant]
     Active Substance: ACETAMINOPHEN
     Dates: start: 20200606
  2. INSULIN GLARGINE [Concomitant]
     Active Substance: INSULIN GLARGINE
     Dates: start: 20200608
  3. VITAMIN C [Concomitant]
     Active Substance: ASCORBIC ACID
     Dates: start: 20200607
  4. INSULIN LISPRO [Concomitant]
     Active Substance: INSULIN LISPRO
     Dates: start: 20200606
  5. VITAMIN D [Concomitant]
     Active Substance: VITAMIN D NOS
     Dates: start: 20200607
  6. ALBUTEROL-IPRATROPIUM [Concomitant]
     Active Substance: ALBUTEROL\IPRATROPIUM
     Dates: start: 20200607
  7. FLUTICASONE-VILANTEROL [Concomitant]
     Active Substance: FLUTICASONE FUROATE\VILANTEROL TRIFENATATE
     Dates: start: 20200606
  8. MELATONIN [Concomitant]
     Active Substance: MELATONIN
     Dates: start: 20200606
  9. ZINC SULFATE. [Concomitant]
     Active Substance: ZINC SULFATE
     Dates: start: 20200607
  10. METHYLPREDNISONE [Concomitant]
     Active Substance: METHYLPREDNISOLONE
     Dates: start: 20200607
  11. REMDESIVIR. [Suspect]
     Active Substance: REMDESIVIR
     Indication: COVID-19
     Route: 042
     Dates: start: 20200606, end: 20200610
  12. APIXABAN [Concomitant]
     Active Substance: APIXABAN
     Dates: start: 20200605
  13. MONTELUKAST [Concomitant]
     Active Substance: MONTELUKAST SODIUM
     Dates: start: 20200605
  14. GUAIFENESIN. [Concomitant]
     Active Substance: GUAIFENESIN
     Dates: start: 20200605
  15. PANTOPRAZOLE [Concomitant]
     Active Substance: PANTOPRAZOLE
     Dates: start: 20200605

REACTIONS (6)
  - Eye pruritus [None]
  - Angioedema [None]
  - Dyspnoea [None]
  - Eye irritation [None]
  - Ear pruritus [None]
  - Throat irritation [None]

NARRATIVE: CASE EVENT DATE: 20200610
